FAERS Safety Report 5271443-1 (Version None)
Quarter: 2007Q1

REPORT INFORMATION
  Report Type: 
  Country: None (occurrence: None)
  Receive Date: 20070321
  Receipt Date: 20060816
  Transmission Date: 20070707
  Serious: Yes (Death, Life-Threatening)
  Sender: FDA-Public Use
  Company Number: UG-BOEHRINGER INGELHEIM GMBH, GERMANY-2006-UK-03145EX

PATIENT
  Sex: Female

DRUGS (7)
  1. VIRAMUNE [Suspect]
     Indication: HIV INFECTION
     Dosage: LEAD IN DOSE
     Dates: start: 20060608
  2. VIRAMUNE [Suspect]
     Dosage: ESCALATED DOSE
     Dates: start: 20060620, end: 20060630
  3. DIDANOSINE [Suspect]
     Indication: HIV INFECTION
     Dates: start: 20060608
  4. KALETRA [Suspect]
     Indication: HIV INFECTION
     Dates: start: 20060608
  5. CO-TRIMOXAZOLE [Suspect]
  6. HALOPERIDOL [Concomitant]
  7. ARTANE [Concomitant]

REACTIONS (1)
  - STEVENS-JOHNSON SYNDROME [None]
